FAERS Safety Report 10713081 (Version 1)
Quarter: 2015Q1

REPORT INFORMATION
  Report Type: Spontaneous
  Country: US (occurrence: US)
  Receive Date: 20150115
  Receipt Date: 20150115
  Transmission Date: 20150721
  Serious: Yes (Hospitalization, Other)
  Sender: FDA-Public Use
  Company Number: US-EMD SERONO-7062961

PATIENT
  Sex: Male
  Weight: 82 kg

DRUGS (1)
  1. REBIF [Suspect]
     Active Substance: INTERFERON BETA-1A
     Indication: PRODUCT USED FOR UNKNOWN INDICATION
     Route: 058
     Dates: start: 20090424

REACTIONS (5)
  - Pancreatitis [Unknown]
  - Musculoskeletal chest pain [Unknown]
  - Blood triglycerides increased [Recovered/Resolved]
  - Diabetes mellitus [Recovered/Resolved]
  - Vision blurred [Unknown]

NARRATIVE: CASE EVENT DATE: 2010
